FAERS Safety Report 4776824-8 (Version None)
Quarter: 2005Q3

REPORT INFORMATION
  Report Type: 
  Country: None (occurrence: None)
  Receive Date: 20050914
  Receipt Date: 20040910
  Transmission Date: 20060218
  Serious: Yes (Hospitalization)
  Sender: FDA-Public Use
  Company Number: 163-20785-04090242

PATIENT
  Age: 60 Year
  Sex: Male

DRUGS (16)
  1. THALOMID [Suspect]
     Dosage: ORAL
     Route: 048
     Dates: start: 20040225
  2. THALOMID [Suspect]
     Dosage: ORAL
     Route: 048
     Dates: start: 20040401
  3. MELPHALAN (MELPHALAN) [Suspect]
     Indication: MULTIPLE MYELOMA
     Dosage: 372 MG, DAILY, INTRAVENOUS
     Route: 042
     Dates: start: 20040507, end: 20040507
  4. MELPHALAN (MELPHALAN) [Suspect]
     Indication: MULTIPLE MYELOMA
     Dosage: 372 MG, DAILY, INTRAVENOUS
     Route: 042
     Dates: start: 20040728, end: 20040728
  5. BORTEZOMIB (BORTEZOMIB) [Suspect]
     Indication: MULTIPLE MYELOMA
     Dates: start: 20040225
  6. BORTEZOMIB (BORTEZOMIB) [Suspect]
     Indication: MULTIPLE MYELOMA
     Dates: start: 20040401
  7. DEXAMETHASONE [Suspect]
     Indication: MULTIPLE MYELOMA
     Dates: start: 20040225
  8. DEXAMETHASONE [Suspect]
     Indication: MULTIPLE MYELOMA
     Dates: start: 20040401
  9. CISPLATIN [Suspect]
     Indication: MULTIPLE MYELOMA
     Dates: start: 20040225
  10. CISPLATIN [Suspect]
     Indication: MULTIPLE MYELOMA
     Dates: start: 20040401
  11. ADRIAMYCIN PFS [Suspect]
     Indication: MULTIPLE MYELOMA
     Dates: start: 20040225
  12. ADRIAMYCIN PFS [Suspect]
     Indication: MULTIPLE MYELOMA
     Dates: start: 20040401
  13. CYCLOPHOSPHAMIDE [Suspect]
     Indication: MULTIPLE MYELOMA
     Dates: start: 20040225
  14. CYCLOPHOSPHAMIDE [Suspect]
     Indication: MULTIPLE MYELOMA
     Dates: start: 20040401
  15. ETOPOSIDE [Suspect]
     Indication: MULTIPLE MYELOMA
     Dates: start: 20040225
  16. ETOPOSIDE [Suspect]
     Indication: MULTIPLE MYELOMA
     Dates: start: 20040401

REACTIONS (1)
  - PNEUMONIA [None]
